FAERS Safety Report 24135487 (Version 3)
Quarter: 2024Q4

REPORT INFORMATION
  Report Type: Report from Study
  Country: DE (occurrence: DE)
  Receive Date: 20240725
  Receipt Date: 20241008
  Transmission Date: 20250114
  Serious: Yes (Hospitalization, Other)
  Sender: ABBVIE
  Company Number: DE-ABBVIE-5851086

PATIENT
  Sex: Male

DRUGS (2)
  1. CARBIDOPA\LEVODOPA [Suspect]
     Active Substance: CARBIDOPA\LEVODOPA
     Indication: Parkinson^s disease
     Dosage: MD 3.0 ML, CRD 2.4 ML/H, ED 2.5 ML.
     Route: 050
     Dates: start: 20191011
  2. CARBIDOPA\LEVODOPA [Suspect]
     Active Substance: CARBIDOPA\LEVODOPA
     Dosage: MD 3.0ML, CRD 2.0ML, ED 0.5 ML
     Route: 050

REACTIONS (5)
  - Unresponsive to stimuli [Unknown]
  - Coma [Recovered/Resolved]
  - Pneumonia [Recovering/Resolving]
  - Incorrect dose administered [Recovered/Resolved]
  - Wrong technique in device usage process [Unknown]
